FAERS Safety Report 4884776-5 (Version None)
Quarter: 2005Q4

REPORT INFORMATION
  Report Type: 
  Country: None (occurrence: None)
  Receive Date: 20051201
  Receipt Date: 20050919
  Transmission Date: 20060501
  Serious: No
  Sender: FDA-Public Use
  Company Number: 2005PV002256

PATIENT
  Age: 51 Year
  Sex: Female
  Weight: 119.296 kg

DRUGS (4)
  1. BYETTA [Suspect]
     Indication: DIABETES MELLITUS NON-INSULIN-DEPENDENT
     Dosage: 5 MCG; BID, SC
     Route: 058
     Dates: start: 20050912
  2. GLYBURIDE [Concomitant]
  3. DIOVAN [Concomitant]
  4. HUMULIN N [Concomitant]

REACTIONS (4)
  - ABDOMINAL DISTENSION [None]
  - BACK PAIN [None]
  - COUGH [None]
  - SNEEZING [None]
